FAERS Safety Report 8991458 (Version 3)
Quarter: 2013Q1

REPORT INFORMATION
  Report Type: Report from Study
  Country: JP (occurrence: JP)
  Receive Date: 20121231
  Receipt Date: 20130201
  Transmission Date: 20140127
  Serious: Yes (Hospitalization)
  Sender: FDA-Public Use
  Company Number: JP-BIOGENIDEC-2012BI059897

PATIENT
  Age: 28 Year
  Sex: Female

DRUGS (8)
  1. TYSABRI [Suspect]
     Indication: RELAPSING-REMITTING MULTIPLE SCLEROSIS
     Dates: start: 20111010, end: 20121106
  2. MAGMITT [Concomitant]
     Dates: start: 20110825
  3. PURSENNID [Concomitant]
     Dates: start: 20110825
  4. PREMARIN [Concomitant]
     Dates: start: 20120221
  5. LUTORAL [Concomitant]
     Dates: start: 20120225
  6. BESACOLIN [Concomitant]
     Dates: start: 20120405
  7. UBRETID [Concomitant]
     Dates: start: 20110913
  8. TRAMCET [Concomitant]
     Dates: start: 20121116

REACTIONS (1)
  - Ectopic pregnancy [Recovered/Resolved]
